FAERS Safety Report 16432792 (Version 1)
Quarter: 2019Q2

REPORT INFORMATION
  Report Type: Spontaneous
  Country: IT (occurrence: IT)
  Receive Date: 20190614
  Receipt Date: 20190614
  Transmission Date: 20190711
  Serious: Yes (Hospitalization, Other)
  Sender: FDA-Public Use
  Company Number: IT-009507513-1906ITA003444

PATIENT
  Age: 62 Year
  Sex: Male

DRUGS (4)
  1. ENTACAPONE. [Suspect]
     Active Substance: ENTACAPONE
     Dosage: 200 MILLIGRAM IN 8 DAILY DOSES
     Route: 048
  2. CARBIDOPA (+) LEVODOPA [Suspect]
     Active Substance: CARBIDOPA\LEVODOPA
     Dosage: UNK
     Route: 048
  3. CARBIDOPA (+) LEVODOPA [Suspect]
     Active Substance: CARBIDOPA\LEVODOPA
     Dosage: HALF TABLET
     Route: 048
  4. ENTACAPONE. [Suspect]
     Active Substance: ENTACAPONE
     Dosage: 200 MILLIGRAM (A TABLET) FOR SIX DAILY DOSE
     Route: 048

REACTIONS (1)
  - Parkinsonism hyperpyrexia syndrome [Recovered/Resolved]
